FAERS Safety Report 14426036 (Version 3)
Quarter: 2018Q1

REPORT INFORMATION
  Report Type: Spontaneous
  Country: US (occurrence: US)
  Receive Date: 20180123
  Receipt Date: 20180315
  Transmission Date: 20180509
  Serious: No
  Sender: FDA-Public Use
  Company Number: US-009507513-1801USA006368

PATIENT
  Age: 29 Year
  Sex: Female

DRUGS (5)
  1. IMPLANON [Suspect]
     Active Substance: ETONOGESTREL
     Indication: MENORRHAGIA
  2. DEPO-PROVERA [Concomitant]
     Active Substance: MEDROXYPROGESTERONE ACETATE
     Indication: CONTRACEPTION
     Dosage: 150 MG, Q3MONTH
     Route: 030
     Dates: start: 20171206
  3. FERROUS SULFATE. [Concomitant]
     Active Substance: FERROUS SULFATE
     Dosage: UNK, 2/DAY
     Route: 048
     Dates: start: 201801
  4. IMPLANON [Suspect]
     Active Substance: ETONOGESTREL
     Indication: CONTRACEPTION
     Dosage: 1 IMPLANT, UNK
     Route: 059
     Dates: start: 20100624
  5. IRON (UNSPECIFIED) (+) VITAMINS (UNSPECIFIED) [Concomitant]
     Dosage: UNK, DAILY
     Route: 048
     Dates: start: 201801

REACTIONS (6)
  - Incorrect drug administration duration [Unknown]
  - Somatic symptom disorder of pregnancy [Unknown]
  - Drug dose omission [Unknown]
  - Product use in unapproved indication [Unknown]
  - Complication associated with device [Recovered/Resolved]
  - Device deployment issue [Recovered/Resolved]

NARRATIVE: CASE EVENT DATE: 20100624
